FAERS Safety Report 26060836 (Version 1)
Quarter: 2025Q4

REPORT INFORMATION
  Report Type: Spontaneous
  Country: JP (occurrence: JP)
  Receive Date: 20251118
  Receipt Date: 20251118
  Transmission Date: 20260118
  Serious: Yes (Life-Threatening, Hospitalization, Other)
  Sender: PFIZER
  Company Number: JP-PFIZER INC-PV202500135363

PATIENT
  Age: 46 Year
  Sex: Female

DRUGS (2)
  1. GEMCITABINE HYDROCHLORIDE [Suspect]
     Active Substance: GEMCITABINE HYDROCHLORIDE
     Indication: Uterine leiomyosarcoma
     Dosage: UNK, (6 CYCLES)
     Dates: start: 201104, end: 201110
  2. DOCETAXEL [Suspect]
     Active Substance: DOCETAXEL
     Indication: Uterine leiomyosarcoma
     Dosage: UNK, (6 CYCLES)
     Dates: start: 201104, end: 201110

REACTIONS (2)
  - Pneumothorax [Unknown]
  - Tumour necrosis [Unknown]

NARRATIVE: CASE EVENT DATE: 20211004
